FAERS Safety Report 4795291-1 (Version None)
Quarter: 2005Q4

REPORT INFORMATION
  Report Type: 
  Country: None (occurrence: None)
  Receive Date: 20051012
  Receipt Date: 20050525
  Transmission Date: 20060501
  Serious: Yes (Death)
  Sender: FDA-Public Use
  Company Number: US-GLAXOSMITHKLINE-A0560003A

PATIENT
  Age: 28 Year
  Sex: Male

DRUGS (1)
  1. WELLBUTRIN [Suspect]
     Indication: STRESS
     Dosage: 100MG PER DAY
     Route: 048
     Dates: start: 20030312

REACTIONS (18)
  - AGITATION [None]
  - AMNESIA [None]
  - ANXIETY [None]
  - COMPLETED SUICIDE [None]
  - CONFUSIONAL STATE [None]
  - DEPRESSION [None]
  - DIZZINESS [None]
  - FEELING ABNORMAL [None]
  - HEADACHE [None]
  - MOOD ALTERED [None]
  - NAUSEA [None]
  - PERSONALITY CHANGE [None]
  - RESTLESSNESS [None]
  - SKIN LACERATION [None]
  - SOCIAL AVOIDANT BEHAVIOUR [None]
  - SOMNOLENCE [None]
  - SPEECH DISORDER [None]
  - TREMOR [None]
